FAERS Safety Report 20876531 (Version 1)
Quarter: 2022Q2

REPORT INFORMATION
  Report Type: Spontaneous
  Country: US (occurrence: None)
  Receive Date: 20220525
  Receipt Date: 20220525
  Transmission Date: 20220721
  Serious: Yes (Hospitalization)
  Sender: FDA-Public Use
  Company Number: None

PATIENT
  Age: 63 Year
  Sex: Female

DRUGS (18)
  1. RYDAPT [Suspect]
     Active Substance: MIDOSTAURIN
     Indication: Acute myeloid leukaemia
     Dosage: OTHER FREQUENCY : Q12HOURS;?
     Route: 048
     Dates: start: 20210930, end: 20220525
  2. ACYCLOVIR [Concomitant]
  3. ATIVAN [Concomitant]
  4. BUDESONIDE [Concomitant]
  5. FLUCONAZOLE [Concomitant]
  6. LEVOFLOXACIN [Concomitant]
  7. LEXAPRO [Concomitant]
     Active Substance: ESCITALOPRAM OXALATE
  8. LIPITOR [Concomitant]
  9. MAGNESIUM SULFATE [Concomitant]
  10. OXYCODONE [Concomitant]
  11. POTASSIUM CHLORIDE [Concomitant]
  12. PROTONIX [Concomitant]
  13. REQUIP [Concomitant]
  14. STEGLATRO [Concomitant]
  15. SYNTHROID [Concomitant]
  16. TACROLIMUS [Concomitant]
  17. VANCOMYCIN [Concomitant]
  18. ZOFRAN [Concomitant]

REACTIONS (1)
  - Disease progression [None]
